FAERS Safety Report 4888146-5 (Version None)
Quarter: 2006Q1

REPORT INFORMATION
  Report Type: 
  Country: None (occurrence: None)
  Receive Date: 20060119
  Receipt Date: 20060106
  Transmission Date: 20060701
  Serious: Yes (Other)
  Sender: FDA-Public Use
  Company Number: 2006005555

PATIENT
  Age: 18 Year
  Sex: Female
  Weight: 88.905 kg

DRUGS (2)
  1. DEPO-PROVERA [Suspect]
     Indication: POSTPARTUM HAEMORRHAGE
     Dosage: SEE IMAGE
     Dates: start: 20021201, end: 20021201
  2. DEPO-PROVERA [Suspect]
     Indication: POSTPARTUM HAEMORRHAGE
     Dosage: SEE IMAGE
     Dates: start: 20040801, end: 20040801

REACTIONS (17)
  - AGGRESSION [None]
  - ALOPECIA [None]
  - AMENORRHOEA [None]
  - BREAST TENDERNESS [None]
  - HAIR GROWTH ABNORMAL [None]
  - HYPERTROPHY BREAST [None]
  - HYPOTRICHOSIS [None]
  - INSOMNIA [None]
  - METRORRHAGIA [None]
  - MOOD SWINGS [None]
  - MUSCLE SPASMS [None]
  - NAUSEA [None]
  - PAROSMIA [None]
  - POLLAKIURIA [None]
  - PREMATURE MENOPAUSE [None]
  - SPOUSAL ABUSE [None]
  - WEIGHT INCREASED [None]
